FAERS Safety Report 14619225 (Version 1)
Quarter: 2018Q1

REPORT INFORMATION
  Report Type: Spontaneous
  Country: NO (occurrence: NO)
  Receive Date: 20180309
  Receipt Date: 20180309
  Transmission Date: 20180509
  Serious: Yes (Other)
  Sender: FDA-Public Use
  Company Number: NO-MYLANLABS-2018M1016107

PATIENT
  Age: 20 Year
  Sex: Female
  Weight: 86 kg

DRUGS (1)
  1. ACICLOVIR [Suspect]
     Active Substance: ACYCLOVIR
     Indication: GENITAL HERPES
     Dosage: 200 MG, UNK
     Dates: start: 20180103, end: 20180108

REACTIONS (3)
  - Sedation [Recovering/Resolving]
  - Confusional state [Recovering/Resolving]
  - Psychotic symptom [Recovering/Resolving]

NARRATIVE: CASE EVENT DATE: 20180105
